FAERS Safety Report 10830069 (Version 1)
Quarter: 2015Q1

REPORT INFORMATION
  Report Type: Report from Study
  Country: US (occurrence: US)
  Receive Date: 20150219
  Receipt Date: 20150219
  Transmission Date: 20150721
  Serious: No
  Sender: FDA-Public Use
  Company Number: US-ABBVIE-14P-163-1190511-00

PATIENT
  Age: 50 Year
  Sex: Female

DRUGS (5)
  1. METHOTREXATE [Concomitant]
     Active Substance: METHOTREXATE
     Indication: RHEUMATOID ARTHRITIS
     Dates: start: 201207
  2. METHOTREXATE [Concomitant]
     Active Substance: METHOTREXATE
     Dates: start: 20140124
  3. FOLIC ACID. [Concomitant]
     Active Substance: FOLIC ACID
     Indication: VITAMIN SUPPLEMENTATION
     Dates: start: 201207
  4. HUMIRA [Suspect]
     Active Substance: ADALIMUMAB
     Indication: RHEUMATOID ARTHRITIS
     Dates: start: 20131216
  5. PLAQUENIL [Concomitant]
     Active Substance: HYDROXYCHLOROQUINE SULFATE
     Indication: RHEUMATOID ARTHRITIS
     Dates: start: 201207

REACTIONS (12)
  - Dehydration [Unknown]
  - Nausea [Unknown]
  - Back pain [Not Recovered/Not Resolved]
  - Malaise [Recovering/Resolving]
  - Pneumonia [Not Recovered/Not Resolved]
  - Skin burning sensation [Not Recovered/Not Resolved]
  - Arthralgia [Unknown]
  - Chromaturia [Unknown]
  - Pain [Unknown]
  - Injection site pain [Recovering/Resolving]
  - Muscle spasms [Not Recovered/Not Resolved]
  - Pain of skin [Not Recovered/Not Resolved]

NARRATIVE: CASE EVENT DATE: 20131216
